FAERS Safety Report 6035049-9 (Version None)
Quarter: 2009Q1

REPORT INFORMATION
  Report Type: 
  Country: None (occurrence: None)
  Receive Date: 20090112
  Receipt Date: 20090106
  Transmission Date: 20090719
  Serious: Yes (Death)
  Sender: FDA-Public Use
  Company Number: US-CELGENEUS-163-21880-08120681

PATIENT
  Sex: Female

DRUGS (3)
  1. REVLIMID [Suspect]
     Indication: MULTIPLE MYELOMA
     Route: 048
     Dates: start: 20080710
  2. REVLIMID [Suspect]
     Route: 048
     Dates: start: 20080606, end: 20080701
  3. REVLIMID [Suspect]
     Route: 048
     Dates: start: 20080424, end: 20080501

REACTIONS (2)
  - AMYLOIDOSIS [None]
  - MULTIPLE MYELOMA [None]
